FAERS Safety Report 8774998 (Version 2)
Quarter: 2013Q4

REPORT INFORMATION
  Report Type: Spontaneous
  Country: US (occurrence: US)
  Receive Date: 20120910
  Receipt Date: 20131101
  Transmission Date: 20140711
  Serious: No
  Sender: FDA-Public Use
  Company Number: US-009507513-1209USA002502

PATIENT
  Sex: Female

DRUGS (1)
  1. IMPLANON [Suspect]
     Indication: CONTRACEPTION
     Dosage: 1 DF, UNK

REACTIONS (6)
  - Depressed mood [Not Recovered/Not Resolved]
  - Agitation [Not Recovered/Not Resolved]
  - Verbal abuse [Not Recovered/Not Resolved]
  - Crying [Not Recovered/Not Resolved]
  - Conversion disorder [Not Recovered/Not Resolved]
  - Bipolar disorder [Not Recovered/Not Resolved]
